FAERS Safety Report 6678634-3 (Version None)
Quarter: 2010Q2

REPORT INFORMATION
  Report Type: 
  Country: None (occurrence: None)
  Receive Date: 20100413
  Receipt Date: 20100406
  Transmission Date: 20101027
  Serious: Yes (Other)
  Sender: FDA-Public Use
  Company Number: US-PFIZER INC-2010015883

PATIENT
  Sex: Female
  Weight: 46.7 kg

DRUGS (1)
  1. DEPO-PROVERA [Suspect]
     Indication: CONTRACEPTION
     Dosage: 150 MG, EVERY 3 MONTHS
     Route: 030
     Dates: start: 20090520, end: 20100121

REACTIONS (9)
  - AMENORRHOEA [None]
  - DERMATITIS CONTACT [None]
  - HYPERSENSITIVITY [None]
  - JOINT SWELLING [None]
  - OEDEMA PERIPHERAL [None]
  - PARVOVIRUS INFECTION [None]
  - PRURITUS [None]
  - RASH MACULAR [None]
  - URTICARIA [None]
